FAERS Safety Report 6540411-1 (Version None)
Quarter: 2010Q1

REPORT INFORMATION
  Report Type: 
  Country: None (occurrence: None)
  Receive Date: 20100113
  Receipt Date: 20100104
  Transmission Date: 20100710
  Serious: Yes (Hospitalization)
  Sender: FDA-Public Use
  Company Number: 233250J08USA

PATIENT
  Age: 59 Year
  Sex: Female
  Weight: 66 kg

DRUGS (3)
  1. REBIF [Suspect]
     Indication: MULTIPLE SCLEROSIS
     Dosage: 44 MCG, 3 IN 1 WEEKS, SUBCUTANEOUS
     Route: 058
     Dates: start: 20080227, end: 20080402
  2. IBUPROFEN [Concomitant]
  3. UNSPECIFIED MEDICATIONS (ALL OVER THERAPUTIC PRODUCTS) [Concomitant]

REACTIONS (8)
  - CYST [None]
  - CYSTITIS INTERSTITIAL [None]
  - DEHYDRATION [None]
  - HAEMATOCRIT DECREASED [None]
  - LOSS OF CONSCIOUSNESS [None]
  - MALAISE [None]
  - RENAL FAILURE CHRONIC [None]
  - URINARY TRACT INFECTION [None]
